FAERS Safety Report 8925021 (Version 1)
Quarter: 2012Q4

REPORT INFORMATION
  Report Type: 
  Country: US (occurrence: US)
  Receive Date: 20121126
  Receipt Date: 20121126
  Transmission Date: 20130627
  Serious: Yes (Hospitalization)
  Sender: FDA-Public Use
  Company Number: US-BAYER-2012-122410

PATIENT
  Age: 19 Year
  Sex: Female
  Weight: 86.17 kg

DRUGS (2)
  1. YAZ [Suspect]
  2. DEPO-PROVERA [Concomitant]
     Dosage: UNK
     Dates: start: 20071214, end: 20090512

REACTIONS (1)
  - Pulmonary embolism [None]
